FAERS Safety Report 12195467 (Version 1)
Quarter: 2016Q1

REPORT INFORMATION
  Report Type: Report from Study
  Country: US (occurrence: US)
  Receive Date: 20160321
  Receipt Date: 20160321
  Transmission Date: 20160526
  Serious: No
  Sender: FDA-Public Use
  Company Number: US-REGENERON PHARMACEUTICALS, INC.-2015-15081

PATIENT

DRUGS (7)
  1. ARCALYST [Suspect]
     Active Substance: RILONACEPT
     Dosage: 160 MG MILLIGRAM(S), WEEKLY
     Route: 058
     Dates: start: 20151220, end: 20151220
  2. ARCALYST [Suspect]
     Active Substance: RILONACEPT
     Dosage: 160 MG MILLIGRAM(S), WEEKLY
     Route: 058
     Dates: start: 20151206, end: 20151206
  3. ARCALYST [Suspect]
     Active Substance: RILONACEPT
     Dosage: 160 MG MILLIGRAM(S), WEEKLY
     Route: 058
     Dates: start: 20151122, end: 20151122
  4. ARCALYST [Suspect]
     Active Substance: RILONACEPT
     Indication: FAMILIAL COLD AUTOINFLAMMATORY SYNDROME
     Dosage: 160 MG MILLIGRAM(S), WEEKLY
     Route: 058
     Dates: start: 2007
  5. ARCALYST [Suspect]
     Active Substance: RILONACEPT
     Dosage: 160 MG MILLIGRAM(S), WEEKLY
     Route: 058
     Dates: start: 20151025, end: 20151025
  6. ARCALYST [Suspect]
     Active Substance: RILONACEPT
     Dosage: 160 MG MILLIGRAM(S), WEEKLY
     Route: 058
     Dates: start: 20151213, end: 20151213
  7. ARCALYST [Suspect]
     Active Substance: RILONACEPT
     Dosage: 160 MG MILLIGRAM(S), WEEKLY
     Route: 058
     Dates: start: 20151115, end: 20151115

REACTIONS (2)
  - Product quality issue [Recovered/Resolved]
  - Drug ineffective [Recovered/Resolved]

NARRATIVE: CASE EVENT DATE: 20151025
